FAERS Safety Report 4678617-9 (Version None)
Quarter: 2005Q2

REPORT INFORMATION
  Report Type: 
  Country: None (occurrence: None)
  Receive Date: 20050527
  Receipt Date: 20050518
  Transmission Date: 20051028
  Serious: Yes (Death, Other)
  Sender: FDA-Public Use
  Company Number: 2004-09-1537

PATIENT
  Age: 68 Year
  Sex: Male
  Weight: 70 kg

DRUGS (3)
  1. CELESTONE SOLUSPAN [Suspect]
     Indication: SINUSITIS
     Dosage: INTRAMUSCULAR
     Route: 030
     Dates: start: 20040821, end: 20040821
  2. DALACIN C TABLETS [Suspect]
     Indication: SINUSITIS
     Dosage: 300 MG Q8H ORAL
     Route: 048
     Dates: start: 20040820
  3. SACCHAROMYCES BOULDARDII [Concomitant]

REACTIONS (6)
  - ABDOMINAL PAIN UPPER [None]
  - BACK PAIN [None]
  - CARDIAC FAILURE [None]
  - CORONARY ARTERY DISEASE [None]
  - MYOCARDIAL ISCHAEMIA [None]
  - RESPIRATORY ARREST [None]
